FAERS Safety Report 9332347 (Version 2)
Quarter: 2013Q2

REPORT INFORMATION
  Report Type: Report from Study
  Country: IT (occurrence: IT)
  Receive Date: 20130606
  Receipt Date: 20130618
  Transmission Date: 20140414
  Serious: Yes (Hospitalization)
  Sender: FDA-Public Use
  Company Number: IT-SHIRE-ALL1-2013-03518

PATIENT
  Age: 12 Year
  Sex: Male
  Weight: 30 kg

DRUGS (1)
  1. IDURSULFASE [Suspect]
     Indication: MUCOPOLYSACCHARIDOSIS II
     Dosage: 15 MG, 1X/WEEK
     Route: 041
     Dates: start: 20061027

REACTIONS (3)
  - Bronchopneumonia [Recovered/Resolved]
  - Gastroenteritis [Recovered/Resolved]
  - Convulsion [Recovered/Resolved]
